FAERS Safety Report 6419146-1 (Version None)
Quarter: 2009Q4

REPORT INFORMATION
  Report Type: 
  Country: None (occurrence: None)
  Receive Date: 20091029
  Receipt Date: 20091023
  Transmission Date: 20100525
  Serious: Yes (Hospitalization)
  Sender: FDA-Public Use
  Company Number: RU-ROCHE-664356

PATIENT
  Sex: Male
  Weight: 66 kg

DRUGS (2)
  1. INTERFERON ALFA [Suspect]
     Indication: RENAL CELL CARCINOMA
     Dosage: DOSE: 9 MU LAST DOSE ON 07 OCTOBER 2009
     Route: 065
     Dates: start: 20090716
  2. BEVACIZUMAB [Suspect]
     Indication: RENAL CELL CARCINOMA
     Dosage: DOSE: 670, LAST DOSE ON 23 SEPTEMBER 2009
     Route: 042
     Dates: start: 20090716, end: 20091006

REACTIONS (1)
  - PERIPROCTITIS [None]
